FAERS Safety Report 8585010-5 (Version None)
Quarter: 2012Q3

REPORT INFORMATION
  Report Type: 
  Country: None (occurrence: None)
  Receive Date: 20120810
  Receipt Date: 20120802
  Transmission Date: 20120928
  Serious: No
  Sender: FDA-Public Use
  Company Number: US-B.I. PHARMACEUTICALS,INC./RIDGEFIELD-2012-BP-17464BP

PATIENT
  Age: 87 Year
  Sex: Female

DRUGS (11)
  1. BLOOD PRESSURE MEDICATION [Concomitant]
  2. BLOOD PRESSURE MEDICATION [Concomitant]
  3. HEART MEDICATION [Concomitant]
     Indication: CARDIAC DISORDER
  4. CHOLESTEROL MEDICATION [Concomitant]
  5. HEART MEDICATION [Concomitant]
  6. PRADAXA [Suspect]
     Indication: ATRIAL FIBRILLATION
     Dosage: 300 MG
     Route: 048
     Dates: start: 20120802
  7. CHOLESTEROL MEDICATION [Concomitant]
  8. HEART MEDICATION [Concomitant]
  9. PRADAXA [Suspect]
     Dosage: 300 MG
     Route: 048
     Dates: start: 20120701
  10. BLOOD PRESSURE MEDICATION [Concomitant]
     Indication: BLOOD PRESSURE
  11. CHOLESTEROL MEDICATION [Concomitant]
     Indication: BLOOD CHOLESTEROL

REACTIONS (1)
  - ACCIDENTAL OVERDOSE [None]
